FAERS Safety Report 7995733-4 (Version None)
Quarter: 2011Q4

REPORT INFORMATION
  Report Type: 
  Country: None (occurrence: None)
  Receive Date: 20111220
  Receipt Date: 20111205
  Transmission Date: 20120403
  Serious: Yes (Hospitalization)
  Sender: FDA-Public Use
  Company Number: IN-BRISTOL-MYERS SQUIBB COMPANY-16272437

PATIENT
  Age: 44 Year
  Sex: Male
  Weight: 53 kg

DRUGS (3)
  1. EFAVIRENZ [Suspect]
     Indication: HIV INFECTION
     Dosage: LAST DOSE:04JUL11 HS AT BEDTIME.
     Route: 048
     Dates: start: 20100317
  2. LAMIVUDINE + ZIDOVUDINE [Suspect]
     Indication: HIV INFECTION
     Dosage: LAST DOSE:05JUL11 1 DF = 150/300 MG
     Route: 048
     Dates: start: 20100317
  3. MULTI-VITAMIN [Concomitant]
     Dosage: 1DF:TAB LAST DOSE ON 5JUL11
     Route: 048

REACTIONS (1)
  - DIABETES MELLITUS [None]
